FAERS Safety Report 19227309 (Version 1)
Quarter: 2021Q2

REPORT INFORMATION
  Report Type: Spontaneous
  Country: DE (occurrence: DE)
  Receive Date: 20210507
  Receipt Date: 20210507
  Transmission Date: 20210717
  Serious: Yes (Hospitalization, Other)
  Sender: FDA-Public Use
  Company Number: DE-AUROBINDO-AUR-APL-2021-018417

PATIENT
  Sex: Female
  Weight: 89 kg

DRUGS (6)
  1. KISQALI [Suspect]
     Active Substance: RIBOCICLIB
     Dosage: 200 MICROGRAM, ONCE A DAY
     Route: 048
     Dates: start: 20191030, end: 20191210
  2. LETROZOLE. [Suspect]
     Active Substance: LETROZOLE
     Indication: BREAST CANCER METASTATIC
     Dosage: 2.5 MILLIGRAM, ONCE A DAY
     Route: 048
     Dates: start: 20190527
  3. KISQALI [Suspect]
     Active Substance: RIBOCICLIB
     Dosage: 300 MICROGRAM, ONCE A DAY
     Route: 048
     Dates: start: 20200116
  4. KISQALI [Suspect]
     Active Substance: RIBOCICLIB
     Indication: BREAST CANCER METASTATIC
     Dosage: 600 MICROGRAM, ONCE A DAY
     Route: 048
     Dates: start: 20190527, end: 20190616
  5. KISQALI [Suspect]
     Active Substance: RIBOCICLIB
     Dosage: 200 MICROGRAM, ONCE A DAY
     Route: 048
     Dates: start: 20190624, end: 20190804
  6. KISQALI [Suspect]
     Active Substance: RIBOCICLIB
     Dosage: 400 MILLIGRAM, ONCE A DAY
     Route: 048
     Dates: start: 20190805, end: 20191029

REACTIONS (5)
  - Hypoventilation [Unknown]
  - Oedema peripheral [Recovered/Resolved]
  - Leukopenia [Recovered/Resolved]
  - Pneumonitis [Recovered/Resolved]
  - Acute kidney injury [Unknown]

NARRATIVE: CASE EVENT DATE: 20190613
